FAERS Safety Report 8394524-2 (Version None)
Quarter: 2012Q2

REPORT INFORMATION
  Report Type: 
  Country: None (occurrence: None)
  Receive Date: 20120525
  Receipt Date: 20120525
  Transmission Date: 20120825
  Serious: Yes (Life-Threatening, Hospitalization)
  Sender: FDA-Public Use
  Company Number: None

PATIENT
  Age: 80 Year
  Sex: Female
  Weight: 65.9 kg

DRUGS (1)
  1. TIZANIDINE [Suspect]
     Dosage: 4MG MG ONCE PO
     Route: 048

REACTIONS (3)
  - HYPOTENSION [None]
  - ANAPHYLACTIC REACTION [None]
  - BRADYCARDIA [None]
